FAERS Safety Report 8405263-3 (Version None)
Quarter: 2012Q2

REPORT INFORMATION
  Report Type: 
  Country: None (occurrence: None)
  Receive Date: 20120603
  Receipt Date: 20120525
  Transmission Date: 20120825
  Serious: Yes (Disabling)
  Sender: FDA-Public Use
  Company Number: GB-TEVA-339776ISR

PATIENT
  Age: 94 Year
  Sex: Female

DRUGS (16)
  1. DOXYCYCLINE [Suspect]
     Dosage: TWO TO START THEN ONE DAILY
     Route: 048
     Dates: start: 20120412
  2. HYPROMELLOSE [Concomitant]
     Indication: GLAUCOMA
     Dosage: ONE DROP WHEN REQUIRED
     Route: 047
     Dates: start: 20110208
  3. ALENDRONATE SODIUM [Concomitant]
     Route: 048
     Dates: start: 20101110
  4. SENNA-MINT WAF [Concomitant]
     Dosage: TAKE AT ONE OR TWO AT NIGHT
  5. TRIMETHOPRIM [Concomitant]
     Dosage: 10ML AT NIGHT
  6. CALCICHEW FORTE CHEWABLE TABLETS [Concomitant]
     Route: 048
  7. DOXYCYCLINE [Concomitant]
     Indication: GLAUCOMA
     Dosage: 1 DROP EVERY NIGHT TO THE LEFT EYE
     Route: 047
     Dates: start: 20100920
  8. SALMETEROL [Concomitant]
     Indication: ASTHMA
     Dosage: 2 PUFFS TWICE DAILY
  9. NITROFURANTOIN [Concomitant]
     Dosage: 50 MILLIGRAM; ONE DAILY
     Route: 048
     Dates: start: 20120426
  10. CIPROFLOXACIN [Concomitant]
     Dosage: 5MLS TWICE DAILY
     Route: 048
  11. DOXYCYCLINE [Suspect]
     Dosage: TWO TO START THEN ONE DAILY
     Route: 048
     Dates: start: 20120316
  12. MACROGOL 3350 [Concomitant]
     Route: 048
  13. NITROFURANTOIN [Concomitant]
     Indication: URINARY TRACT INFECTION
     Dosage: 50 MILLIGRAM; ONE DAILY
     Route: 048
     Dates: start: 20120320
  14. ACETAMINOPHEN [Concomitant]
     Dosage: 2-4 SPOONFULS UP TO FOUR TIMES DAILY
     Route: 048
     Dates: start: 20120320
  15. ALBUTEROL [Concomitant]
     Dosage: INHALE 2 DOSES AS NEEDED
  16. AQUEOUS CREAM [Concomitant]
     Dosage: APPLY AS NEEDED
     Route: 061

REACTIONS (1)
  - PRESYNCOPE [None]
